FAERS Safety Report 5823518-3 (Version None)
Quarter: 2008Q3

REPORT INFORMATION
  Report Type: 
  Country: None (occurrence: None)
  Receive Date: 20080725
  Receipt Date: 20080714
  Transmission Date: 20090109
  Serious: Yes (Disabling)
  Sender: FDA-Public Use
  Company Number: GB-PFIZER INC-2008058470

PATIENT
  Age: 77 Year
  Sex: Male

DRUGS (8)
  1. LINEZOLID [Suspect]
     Indication: PNEUMONIA
     Route: 048
     Dates: start: 20080605, end: 20080619
  2. ALLOPURINOL [Concomitant]
     Indication: GOUT
     Dosage: DAILY DOSE:60MG
     Route: 048
  3. ASPIRIN [Concomitant]
     Dosage: DAILY DOSE:75MG
     Route: 048
  4. LANSOPRAZOLE [Concomitant]
     Route: 048
  5. LIPITOR [Concomitant]
     Indication: BLOOD CHOLESTEROL INCREASED
     Dosage: DAILY DOSE:40MG
     Route: 048
  6. PYRIDOXINE [Concomitant]
     Route: 048
  7. RAMIPRIL [Concomitant]
     Indication: HYPERTENSION
     Dosage: DAILY DOSE:1.25MG
     Route: 048
  8. ALBUTEROL [Concomitant]
     Indication: ASTHMA
     Route: 055

REACTIONS (2)
  - DYSPNOEA [None]
  - METABOLIC ACIDOSIS [None]
